FAERS Safety Report 8973095 (Version 1)
Quarter: 2012Q4

REPORT INFORMATION
  Report Type: 
  Country: US (occurrence: US)
  Receive Date: 20121218
  Receipt Date: 20121218
  Transmission Date: 20130627
  Serious: No
  Sender: FDA-Public Use
  Company Number: US-BRISTOL-MYERS SQUIBB COMPANY-16997603

PATIENT
  Age: 26 Year
  Sex: Female
  Weight: 53.06 kg

DRUGS (3)
  1. ABILIFY [Suspect]
     Indication: BIPOLAR DISORDER
     Dosage: decreased 25mg
  2. CITALOPRAM [Concomitant]
     Indication: ANXIETY
  3. LITHIUM [Concomitant]

REACTIONS (4)
  - Muscle twitching [Unknown]
  - Muscle spasms [Unknown]
  - Drug ineffective [Unknown]
  - Amnesia [Unknown]
